FAERS Safety Report 5016347-4 (Version None)
Quarter: 2006Q2

REPORT INFORMATION
  Report Type: 
  Country: None (occurrence: None)
  Receive Date: 20060414
  Receipt Date: 20051230
  Transmission Date: 20061013
  Serious: No
  Sender: FDA-Public Use
  Company Number: 2005160220

PATIENT
  Age: 74 Year
  Sex: Female
  Weight: 65.7716 kg

DRUGS (10)
  1. MACUGEN [Suspect]
     Indication: MACULAR DEGENERATION
     Dosage: INTRAOCULAR
     Route: 031
     Dates: start: 20051122
  2. ANTIBIOTICS FOR TOPICAL USE (ANTIBIOTICS FOR TOPICAL USE) [Concomitant]
  3. PHOSPHORUS (PHOSPHORUS) [Concomitant]
  4. LASIX [Concomitant]
  5. IMDUR [Concomitant]
  6. HYZAAR [Concomitant]
  7. ACCOLATE [Concomitant]
  8. AMITRIPTYLINE HCL [Concomitant]
  9. LORAZEPAM [Concomitant]
  10. LOMOTIL [Concomitant]

REACTIONS (4)
  - ABNORMAL SENSATION IN EYE [None]
  - CONJUNCTIVAL HAEMORRHAGE [None]
  - EYE PAIN [None]
  - KERATOPATHY [None]
